FAERS Safety Report 5092349-7 (Version None)
Quarter: 2006Q3

REPORT INFORMATION
  Report Type: 
  Country: None (occurrence: None)
  Receive Date: 20060727
  Receipt Date: 20060626
  Transmission Date: 20061208
  Serious: Yes (Other)
  Sender: FDA-Public Use
  Company Number: 2006081487

PATIENT
  Sex: Female

DRUGS (3)
  1. LYRICA [Suspect]
     Indication: PAIN
     Dosage: 150 MG (75 MG,2 IN 1 D)
     Dates: start: 20060625
  2. CELEBREX [Concomitant]
  3. CHOLESTEROL- AND TRIGLYCERIDES REDUCERS (CHOLESTEROL- AND TRIGLYCERIDE [Concomitant]

REACTIONS (4)
  - ASTHENIA [None]
  - DIZZINESS [None]
  - DRY MOUTH [None]
  - NAUSEA [None]
